FAERS Safety Report 24383792 (Version 1)
Quarter: 2024Q4

REPORT INFORMATION
  Report Type: Spontaneous
  Country: FR (occurrence: FR)
  Receive Date: 20241001
  Receipt Date: 20241001
  Transmission Date: 20250114
  Serious: Yes (Other)
  Sender: ABBVIE
  Company Number: None

PATIENT
  Age: 25 Year
  Sex: Female
  Weight: 49 kg

DRUGS (11)
  1. CREON [Suspect]
     Active Substance: PANCRELIPASE AMYLASE\PANCRELIPASE LIPASE\PANCRELIPASE PROTEASE
     Indication: Cystic fibrosis
     Dosage: 25 000 U, GRANUL?S GASTRO-R?SISTANTS EN G?LULE
     Route: 048
  2. SERTRALINE [Suspect]
     Active Substance: SERTRALINE HYDROCHLORIDE
     Indication: Mixed anxiety and depressive disorder
     Dosage: LAST ADMIN DATE 2024?SERTRALINE BASE
     Route: 048
     Dates: start: 20240328
  3. POLYETHYLENE GLYCOL 4000 [Suspect]
     Active Substance: POLYETHYLENE GLYCOL 4000
     Indication: Constipation
     Dosage: TIME INTERVAL: 1 AS NECESSARY
     Route: 048
     Dates: start: 20240328
  4. LANSOPRAZOLE [Suspect]
     Active Substance: LANSOPRAZOLE
     Indication: Gastrooesophageal reflux disease
     Route: 048
     Dates: start: 20240114
  5. ALBUTEROL [Suspect]
     Active Substance: ALBUTEROL
     Indication: Cystic fibrosis
     Dosage: TIME INTERVAL: 1 AS NECESSARY
     Route: 065
     Dates: start: 20240328
  6. CETIRIZINE [Suspect]
     Active Substance: CETIRIZINE HYDROCHLORIDE
     Indication: Product used for unknown indication
     Dosage: TIME INTERVAL: 1 AS NECESSARY: (DICHLORHYDRATE DE)
     Route: 048
     Dates: start: 20240328
  7. OXAZEPAM [Suspect]
     Active Substance: OXAZEPAM
     Indication: Mixed anxiety and depressive disorder
     Dosage: LAST ADMIN DATE 2024
     Route: 048
     Dates: start: 20240328
  8. OXAZEPAM [Suspect]
     Active Substance: OXAZEPAM
     Indication: Mixed anxiety and depressive disorder
     Route: 048
     Dates: start: 2024
  9. ELEXACAFTOR\IVACAFTOR\TEZACAFTOR [Suspect]
     Active Substance: ELEXACAFTOR\IVACAFTOR\TEZACAFTOR
     Indication: Cystic fibrosis
     Route: 048
     Dates: start: 202107
  10. KALYDECO [Suspect]
     Active Substance: IVACAFTOR
     Indication: Cystic fibrosis
     Dosage: 150 MG, COMPRIM? PELLICUL?
     Route: 048
     Dates: start: 202107
  11. URSODIOL [Suspect]
     Active Substance: URSODIOL
     Indication: Cystic fibrosis
     Dosage: 500 MG, COMPRIM? PELLICUL? S?CABLE
     Route: 048

REACTIONS (1)
  - Oesophageal achalasia [Not Recovered/Not Resolved]

NARRATIVE: CASE EVENT DATE: 20240425
